FAERS Safety Report 9548844 (Version 1)
Quarter: 2013Q2

REPORT INFORMATION
  Report Type: Spontaneous
  Country: US (occurrence: None)
  Receive Date: 20130627
  Receipt Date: 20130627
  Transmission Date: 20140414
  Serious: No
  Sender: FDA-Public Use
  Company Number: 1000045362

PATIENT
  Age: 90 Year
  Sex: Male

DRUGS (15)
  1. LINZESS (LINACLOTIDE) (145 MICROGRAM, CAPSULES) [Suspect]
     Indication: CONSTIPATION
     Route: 048
     Dates: start: 201305
  2. ZOFRAN (ONDANSETRON) (ODANSETRON) [Concomitant]
  3. LEVOTHYROXINE (LEVOTHYROXINE SODIUM) (LEVOTHYROXINE SODIUM) [Concomitant]
  4. DEXILANT (DEXLANSOPRAZOLE) (DEXLANSOPRAZOLE) [Concomitant]
  5. SPIRIVA (TIOTROPIUM BROMIDE) (TIOTROPIUM BROMIDE) [Concomitant]
  6. AMLODIPINE (AMLODIPINE) [Concomitant]
  7. FOLIC ACID (FOLIC ACID) [Concomitant]
  8. METAMUCIL (PSYLLIUM) (PSYLLIUM) [Concomitant]
  9. AVODART (DUTASTERIDE) (DUTASTERIDE) [Concomitant]
  10. SULFASALAZINE (SULFASALAZINE) [Concomitant]
  11. VITAMIN D (VITAMIN D) [Concomitant]
  12. FLONASE (FLUTICASONE PROPIONATE) (FLUTICASONE PROPIONATE) [Concomitant]
  13. TAMSULOSIN (TAMSULOSIN) [Concomitant]
  14. LEXAPRO (ESCITALOPRAM OXALATE) (ESCITALOPRAM OXALATE) [Concomitant]
  15. LORAZEPAM (LORAZEPAM) [Concomitant]

REACTIONS (1)
  - Drug ineffective [None]
